FAERS Safety Report 6469531-7 (Version None)
Quarter: 2009Q4

REPORT INFORMATION
  Report Type: 
  Country: None (occurrence: None)
  Receive Date: 20091203
  Receipt Date: 20091127
  Transmission Date: 20100525
  Serious: Yes (Hospitalization)
  Sender: FDA-Public Use
  Company Number: FR-PFIZER INC-2009303282

PATIENT
  Age: 42 Year
  Sex: Male

DRUGS (5)
  1. TAHOR [Suspect]
     Indication: DYSLIPIDAEMIA
     Dosage: UNK
     Route: 048
     Dates: start: 20070101
  2. TRIATEC [Suspect]
     Dosage: UNK
     Route: 048
     Dates: start: 20070301
  3. KARDEGIC [Concomitant]
  4. CARDENSIEL [Concomitant]
  5. APROVEL [Concomitant]

REACTIONS (1)
  - PANCREATITIS ACUTE [None]
